FAERS Safety Report 5889264-5 (Version None)
Quarter: 2008Q3

REPORT INFORMATION
  Report Type: 
  Country: None (occurrence: None)
  Receive Date: 20080919
  Receipt Date: 20080908
  Transmission Date: 20090109
  Serious: Yes (Hospitalization)
  Sender: FDA-Public Use
  Company Number: KR-ROCHE-585014

PATIENT
  Sex: Female
  Weight: 56 kg

DRUGS (2)
  1. CAPECITABINE [Suspect]
     Indication: GASTRIC CANCER
     Dosage: LAST DOSE PRIOR TO SAE 28 AUGUST 2008, FREQUENCY REPORTED AS:2
     Route: 048
     Dates: start: 20080815
  2. CISPLATIN [Suspect]
     Indication: GASTRIC CANCER
     Dosage: FREQUENCY REPORTED:1 LAST DOSE PRIOR TO SAE: 15 AUGUST 2008, DOSAGE FORM REPORTED:VIAL
     Route: 042
     Dates: start: 20080815

REACTIONS (1)
  - PANCREATITIS ACUTE [None]
